FAERS Safety Report 5090151-3 (Version None)
Quarter: 2006Q3

REPORT INFORMATION
  Report Type: 
  Country: None (occurrence: None)
  Receive Date: 20060828
  Receipt Date: 20060816
  Transmission Date: 20061208
  Serious: Yes (Death)
  Sender: FDA-Public Use
  Company Number: FR-SANOFI-SYNTHELABO-A01200606747

PATIENT
  Age: 93 Year
  Sex: Male

DRUGS (1)
  1. LEUPROLIDE ACETATE [Suspect]
     Indication: PROSTATE CANCER
     Route: 058
     Dates: start: 20060331, end: 20060601

REACTIONS (5)
  - ARTHRALGIA [None]
  - DISEASE PROGRESSION [None]
  - GAIT DISTURBANCE [None]
  - METASTASES TO BONE [None]
  - PROSTATE CANCER [None]
